FAERS Safety Report 4289174-3 (Version None)
Quarter: 2004Q1

REPORT INFORMATION
  Report Type: 
  Country: None (occurrence: None)
  Receive Date: 20040115
  Receipt Date: 20021126
  Transmission Date: 20041129
  Serious: No
  Sender: FDA-Public Use
  Company Number: 105027

PATIENT
  Age: 88 Year
  Sex: Female
  Weight: 62.9 kg

DRUGS (6)
  1. ACTIVASE [Suspect]
     Indication: ACUTE MYOCARDIAL INFARCTION
     Dosage: 15 MG, SINGLE, IV BOLUS ; 0.75 MG/KG, IV DRIP
     Route: 041
     Dates: start: 20021110, end: 20021110
  2. LOVENOX [Concomitant]
  3. ATIVAN [Concomitant]
  4. REGLAN [Concomitant]
  5. DOPAMINE HCL [Concomitant]
  6. ATROPINE [Concomitant]

REACTIONS (2)
  - HAEMATOMA [None]
  - INJECTION SITE HAEMORRHAGE [None]
